FAERS Safety Report 9340116 (Version 2)
Quarter: 2013Q3

REPORT INFORMATION
  Report Type: Report from Study
  Country: US (occurrence: US)
  Receive Date: 20130610
  Receipt Date: 20130712
  Transmission Date: 20140515
  Serious: Yes (Hospitalization)
  Sender: FDA-Public Use
  Company Number: US-US-EMD SERONO, INC.-7215786

PATIENT
  Age: 33 Year
  Sex: Female

DRUGS (2)
  1. REBIF [Suspect]
     Indication: MULTIPLE SCLEROSIS
     Route: 058
     Dates: start: 20130408
  2. NORTRIPTYLINE [Concomitant]
     Indication: DEPRESSION

REACTIONS (3)
  - Multiple sclerosis relapse [Recovered/Resolved]
  - Primary progressive multiple sclerosis [Unknown]
  - Injection site urticaria [Recovered/Resolved]
